FAERS Safety Report 6144955-6 (Version None)
Quarter: 2009Q2

REPORT INFORMATION
  Report Type: 
  Country: None (occurrence: None)
  Receive Date: 20090406
  Receipt Date: 20090402
  Transmission Date: 20091009
  Serious: Yes (Other)
  Sender: FDA-Public Use
  Company Number: FR-WYE-G03443309

PATIENT
  Sex: Female

DRUGS (2)
  1. ADVIL [Suspect]
     Indication: PYREXIA
     Dosage: ONE SINGLE DOSE
     Route: 048
     Dates: start: 20090331, end: 20090331
  2. ADVIL [Suspect]
     Indication: HEADACHE

REACTIONS (3)
  - FEEDING DISORDER [None]
  - HYPERSENSITIVITY [None]
  - LIP SWELLING [None]
